FAERS Safety Report 23675272 (Version 1)
Quarter: 2024Q1

REPORT INFORMATION
  Report Type: Report from Study
  Country: US (occurrence: US)
  Receive Date: 20240327
  Receipt Date: 20240327
  Transmission Date: 20240410
  Serious: Yes (Hospitalization)
  Sender: FDA-Public Use
  Company Number: US-ACADIA PHARMACEUTICALS INC.-ACA-2024-PIM-001343

PATIENT
  Sex: Male

DRUGS (3)
  1. NUPLAZID [Suspect]
     Active Substance: PIMAVANSERIN TARTRATE
     Indication: Parkinson^s disease psychosis
     Dosage: 44 MILLIGRAM (34MG CAPSULE+10 MG TABLET)
     Route: 048
     Dates: end: 20240229
  2. NUPLAZID [Suspect]
     Active Substance: PIMAVANSERIN TARTRATE
     Dosage: 34 MILLIGRAM, QD
     Route: 048
  3. NUPLAZID [Suspect]
     Active Substance: PIMAVANSERIN TARTRATE
     Indication: Parkinson^s disease psychosis
     Dosage: 44 MILLIGRAM (34MG CAPSULE+10 MG TABLET)
     Route: 048
     Dates: end: 20240229

REACTIONS (4)
  - Rib fracture [Not Recovered/Not Resolved]
  - Fall [Unknown]
  - Hallucination [Not Recovered/Not Resolved]
  - Overdose [Recovered/Resolved]
